FAERS Safety Report 6787809-4 (Version None)
Quarter: 2010Q2

REPORT INFORMATION
  Report Type: 
  Country: None (occurrence: None)
  Receive Date: 20100623
  Receipt Date: 20080314
  Transmission Date: 20101027
  Serious: Yes (Other)
  Sender: FDA-Public Use
  Company Number: PFIZER INC-2007044155

PATIENT
  Age: 60 Year

DRUGS (1)
  1. SUTENT [Suspect]
     Indication: RENAL CELL CARCINOMA
     Dosage: 4 WEEKS ON AND 2 WEEKS OFF
     Route: 048
     Dates: start: 20060919

REACTIONS (1)
  - EJECTION FRACTION DECREASED [None]
